FAERS Safety Report 15719211 (Version 3)
Quarter: 2019Q1

REPORT INFORMATION
  Report Type: Spontaneous
  Country: AT (occurrence: AT)
  Receive Date: 20181213
  Receipt Date: 20190117
  Transmission Date: 20190417
  Serious: Yes (Other)
  Sender: FDA-Public Use
  Company Number: AT-MYLANLABS-2018M1092358

PATIENT
  Age: 73 Year
  Sex: Male

DRUGS (1)
  1. GEMCITABINE [Suspect]
     Active Substance: GEMCITABINE\GEMCITABINE HYDROCHLORIDE
     Indication: PANCREATIC CARCINOMA
     Dosage: 1000 MG/M2 ON DAY 1, 8 AND 15, Q4W ONCE EVERY 4 WEEK
     Route: 065
     Dates: start: 20170529

REACTIONS (5)
  - Pancreatic carcinoma [Unknown]
  - Drug resistance [Unknown]
  - Weight decreased [Unknown]
  - Neutropenia [Unknown]
  - Malignant neoplasm progression [Unknown]
